FAERS Safety Report 17609317 (Version 1)
Quarter: 2020Q2

REPORT INFORMATION
  Report Type: Spontaneous
  Country: GB (occurrence: GB)
  Receive Date: 20200401
  Receipt Date: 20200401
  Transmission Date: 20200713
  Serious: Yes (Death)
  Sender: FDA-Public Use
  Company Number: GB-MACLEODS PHARMACEUTICALS US LTD-MAC2020025987

PATIENT

DRUGS (2)
  1. CHLORPROPAMIDE. [Concomitant]
     Active Substance: CHLORPROPAMIDE
     Indication: HYPERGLYCAEMIA
     Dosage: 250 MILLIGRAM, QD
     Route: 065
  2. METFORMIN HYDROCHLORIDE. [Suspect]
     Active Substance: METFORMIN HYDROCHLORIDE
     Indication: HYPERGLYCAEMIA
     Dosage: 0.5 GRAM, BID
     Route: 065

REACTIONS (3)
  - Malabsorption [Fatal]
  - Anaemia megaloblastic [Fatal]
  - Myocardial infarction [Fatal]
